FAERS Safety Report 10978990 (Version 1)
Quarter: 2015Q1

REPORT INFORMATION
  Report Type: Spontaneous
  Country: US (occurrence: None)
  Receive Date: 20150227
  Receipt Date: 20150227
  Transmission Date: 20150721
  Serious: Yes (Other)
  Sender: FDA-Public Use
  Company Number: OMPQ-PR-1401S-0036

PATIENT
  Age: 46 Year
  Sex: Female

DRUGS (6)
  1. PROVENTIL (SALBUTAMOL) [Concomitant]
  2. ATIVAN [Concomitant]
     Active Substance: LORAZEPAM
  3. LOPRESSOR [Concomitant]
     Active Substance: METOPROLOL TARTRATE
  4. SYNTHROID [Concomitant]
     Active Substance: LEVOTHYROXINE SODIUM
  5. DECARDRON (DEXAMETHASONE) [Concomitant]
  6. OMNIPAQUE [Suspect]
     Active Substance: IOHEXOL
     Indication: CERVICAL MYELOPATHY
     Dosage: 100ML, SINGLE DOSE, INTRAVENOUS
     Route: 042
     Dates: start: 20140114, end: 20140114

REACTIONS (2)
  - Urticaria [None]
  - Pruritus [None]

NARRATIVE: CASE EVENT DATE: 20140114
